FAERS Safety Report 9563449 (Version 1)
Quarter: 2013Q1

REPORT INFORMATION
  Report Type: Spontaneous
  Country: US (occurrence: None)
  Receive Date: 20121227
  Receipt Date: 20121227
  Transmission Date: 20140127
  Serious: Yes (Other)
  Sender: FDA-Public Use
  Company Number: PHEH2012US011241

PATIENT
  Sex: Female

DRUGS (1)
  1. EXJADE (*CGP 72670*) [Suspect]
     Indication: IRON OVERLOAD
     Route: 048

REACTIONS (1)
  - Cataract [None]
